FAERS Safety Report 24433430 (Version 1)
Quarter: 2024Q4

REPORT INFORMATION
  Report Type: Spontaneous
  Country: SE (occurrence: SE)
  Receive Date: 20241014
  Receipt Date: 20241014
  Transmission Date: 20250114
  Serious: Yes (Hospitalization)
  Sender: TEVA
  Company Number: None

PATIENT
  Age: 79 Year
  Sex: Male
  Weight: 95 kg

DRUGS (7)
  1. OMEPRAZOLE [Suspect]
     Active Substance: OMEPRAZOLE
     Indication: Product used for unknown indication
     Dosage: 1/DAY,?OMEPRAZOLE ACTAVIS,
     Route: 048
     Dates: start: 20240820, end: 20240904
  2. LEUPROLIDE ACETATE [Concomitant]
     Active Substance: LEUPROLIDE ACETATE
     Indication: Product used for unknown indication
     Dosage: 1 IMPLANT EVERY 3 MONTHS, LEUPRORELIN ORIFARM, LEUPRORELIN STRENGTH :5 MG, LEUPRORELIN ACETATE ST...
     Route: 058
     Dates: start: 20240527
  3. LOSARTAN POTASSIUM [Concomitant]
     Active Substance: LOSARTAN POTASSIUM
     Indication: Product used for unknown indication
     Dosage: 1X1 LOSARTAN STRENGTH :45.87MG, LOSARTAN POTASSIUM STRENGTH :50 MG,
     Route: 048
     Dates: start: 201501
  4. PREDNISOLONE [Concomitant]
     Active Substance: PREDNISOLONE
     Indication: Product used for unknown indication
     Dosage: 1X1, PREDNISOLONE ACTAVIS,
     Route: 065
     Dates: start: 20240820, end: 20240904
  5. ATORVASTATIN [Concomitant]
     Active Substance: ATORVASTATIN
     Indication: Product used for unknown indication
     Dosage: 1X1, ATORVASTATIN STRENGTH: 20MG, ATORVASTATIN CALCIUM, AMORPHOUS STRENGTH: 20.72 MG,
     Route: 048
     Dates: start: 201712
  6. AMLODIPINE BESYLATE [Concomitant]
     Active Substance: AMLODIPINE BESYLATE
     Indication: Product used for unknown indication
     Dosage: 1X1, AMLODIPINE KRKA,AMLODIPINE STRENGTH: 5MG, AMLODIPINE BESYLATE STRENGTH :6.94 MG,
     Route: 048
     Dates: start: 202205
  7. ABIRATERONE [Suspect]
     Active Substance: ABIRATERONE
     Indication: Prostate cancer metastatic
     Dosage: 2/DAY, ABIRATERONE ACCORD
     Route: 048
     Dates: start: 20240820, end: 20240904

REACTIONS (4)
  - Fatigue [Recovering/Resolving]
  - Nausea [Recovering/Resolving]
  - Renal failure [Recovering/Resolving]
  - Headache [Recovering/Resolving]

NARRATIVE: CASE EVENT DATE: 20240903
